FAERS Safety Report 5060770-9 (Version None)
Quarter: 2006Q3

REPORT INFORMATION
  Report Type: 
  Country: None (occurrence: None)
  Receive Date: 20060719
  Receipt Date: 20060719
  Transmission Date: 20061208
  Serious: No
  Sender: FDA-Public Use
  Company Number: None

PATIENT
  Sex: Female
  Weight: 73.9363 kg

DRUGS (2)
  1. BEVACIZUMAB    400MG   GENETECSH [Suspect]
     Indication: OVARIAN CANCER
     Dosage: 754 MG   DAY 1 + 15    041
     Dates: start: 20060525, end: 20060706
  2. ZOFRAN [Concomitant]

REACTIONS (1)
  - ABDOMINAL ABSCESS [None]
